FAERS Safety Report 10586356 (Version 1)
Quarter: 2014Q4

REPORT INFORMATION
  Report Type: Spontaneous
  Country: US (occurrence: US)
  Receive Date: 20141117
  Receipt Date: 20141117
  Transmission Date: 20150529
  Serious: Yes (Other)
  Sender: FDA-Public Use
  Company Number: US-AUROBINDO-AUR-APL-2014-12052

PATIENT
  Age: 62 Year
  Sex: Male
  Weight: 94 kg

DRUGS (9)
  1. OXYCONTIN [Concomitant]
     Active Substance: OXYCODONE HYDROCHLORIDE
     Indication: PRODUCT USED FOR UNKNOWN INDICATION
     Dosage: UNK
     Route: 065
  2. SYMBICORT [Concomitant]
     Active Substance: BUDESONIDE\FORMOTEROL FUMARATE DIHYDRATE
     Indication: CHRONIC OBSTRUCTIVE PULMONARY DISEASE
     Dosage: UNK
     Route: 065
  3. LIPITOR [Suspect]
     Active Substance: ATORVASTATIN CALCIUM
     Indication: CHEST PAIN
  4. OMEPRAZOLE. [Concomitant]
     Active Substance: OMEPRAZOLE
     Indication: GASTROOESOPHAGEAL REFLUX DISEASE
     Dosage: 20 MG, ONCE A DAY
     Route: 065
     Dates: start: 201407
  5. METOPROLOL 25MG [Suspect]
     Active Substance: METOPROLOL
     Indication: ARTERIAL OCCLUSIVE DISEASE
     Dosage: 25 MG, TWO TIMES A DAY
     Route: 065
  6. LIPITOR [Suspect]
     Active Substance: ATORVASTATIN CALCIUM
     Indication: BLOOD CHOLESTEROL INCREASED
     Dosage: 20 MG, ONCE A DAY AT BEDTIME
     Route: 065
     Dates: start: 20140320
  7. CLONAZEPAM. [Concomitant]
     Active Substance: CLONAZEPAM
     Indication: PRODUCT USED FOR UNKNOWN INDICATION
     Dosage: 0.5 MG, AS NEEDED UPTO 3 TIMES A DAY
     Route: 065
  8. FLUTICASONE [Concomitant]
     Active Substance: FLUTICASONE\FLUTICASONE PROPIONATE
     Indication: PRODUCT USED FOR UNKNOWN INDICATION
     Dosage: 2 SPARAYS IN EACH NOSTRIL, TWO TIMES A DAY
     Route: 065
  9. ALBUTEROL                          /00139501/ [Concomitant]
     Active Substance: ALBUTEROL
     Indication: PRODUCT USED FOR UNKNOWN INDICATION
     Dosage: UNK UNK, AS NECESSARY
     Route: 065

REACTIONS (9)
  - Pain in extremity [Unknown]
  - Loss of consciousness [Unknown]
  - Muscle spasms [Unknown]
  - Arterial occlusive disease [Unknown]
  - Dyspnoea [Unknown]
  - Malaise [Unknown]
  - Muscular weakness [Not Recovered/Not Resolved]
  - Hyperkalaemia [Unknown]
  - Dizziness [Unknown]

NARRATIVE: CASE EVENT DATE: 2014
